FAERS Safety Report 15326145 (Version 5)
Quarter: 2019Q4

REPORT INFORMATION
  Report Type: Spontaneous
  Country: US (occurrence: US)
  Receive Date: 20180828
  Receipt Date: 20191014
  Transmission Date: 20200122
  Serious: Yes (Hospitalization, Other)
  Sender: FDA-Public Use
  Company Number: US-PFIZER INC-2018341949

PATIENT
  Age: 80 Year
  Sex: Female
  Weight: 55.79 kg

DRUGS (1)
  1. TIKOSYN [Suspect]
     Active Substance: DOFETILIDE
     Indication: ATRIAL FIBRILLATION
     Dosage: 250 UG, TWICE A DAY (IN MORNING AND AT NIGHT)
     Dates: start: 2009

REACTIONS (2)
  - Tooth abscess [Unknown]
  - Varicose vein [Unknown]
